FAERS Safety Report 22659189 (Version 1)
Quarter: 2023Q2

REPORT INFORMATION
  Report Type: Other
  Country: NL (occurrence: NL)
  Receive Date: 20230630
  Receipt Date: 20230630
  Transmission Date: 20230722
  Serious: Yes (Other)
  Sender: FDA-Public Use
  Company Number: NL-ROCHE-2876773

PATIENT
  Age: 9 Year
  Sex: Male

DRUGS (1)
  1. RITUXIMAB [Suspect]
     Active Substance: RITUXIMAB
     Indication: Nephrotic syndrome
     Dosage: ONE CYCLE CONSISTED OF 2 INFUSIONS WITH 7-14 DAYS INTERVAL
     Route: 042

REACTIONS (3)
  - Infusion related reaction [Unknown]
  - Off label use [Unknown]
  - Off label use [Unknown]
